FAERS Safety Report 10531201 (Version 2)
Quarter: 2014Q4

REPORT INFORMATION
  Report Type: Spontaneous
  Country: DK (occurrence: DK)
  Receive Date: 20141021
  Receipt Date: 20141026
  Transmission Date: 20150529
  Serious: Yes (Life-Threatening, Hospitalization)
  Sender: FDA-Public Use
  Company Number: DK-BRISTOL-MYERS SQUIBB COMPANY-21490602

PATIENT
  Age: 53 Year
  Sex: Male

DRUGS (5)
  1. BENDROFLUMETHIAZIDE [Concomitant]
     Active Substance: BENDROFLUMETHIAZIDE
  2. KALIUMKLORIDE [Concomitant]
  3. LIQUORICE [Suspect]
     Active Substance: LICORICE
     Dosage: 1 DF=10-12 PIRATOS
     Route: 048
  4. FORXIGA [Suspect]
     Active Substance: DAPAGLIFLOZIN
     Dates: start: 201407, end: 201409
  5. ENALAPRIL MALEATE. [Concomitant]
     Active Substance: ENALAPRIL MALEATE

REACTIONS (11)
  - Myalgia [Unknown]
  - Hypokalaemia [Recovered/Resolved]
  - Muscle twitching [Unknown]
  - Hyperhidrosis [Not Recovered/Not Resolved]
  - Blood urine present [Unknown]
  - Rhabdomyolysis [Recovered/Resolved]
  - Paraesthesia [Unknown]
  - Dyspnoea [Unknown]
  - Secondary aldosteronism [Unknown]
  - Dysgeusia [Unknown]
  - Fatigue [Not Recovered/Not Resolved]

NARRATIVE: CASE EVENT DATE: 2014
